FAERS Safety Report 8540295-6 (Version None)
Quarter: 2012Q3

REPORT INFORMATION
  Report Type: 
  Country: None (occurrence: None)
  Receive Date: 20120726
  Receipt Date: 20120718
  Transmission Date: 20120928
  Serious: Yes (Hospitalization, Other)
  Sender: FDA-Public Use
  Company Number: FI-ROCHE-1031398

PATIENT
  Sex: Female
  Weight: 60 kg

DRUGS (5)
  1. ACTEMRA [Suspect]
     Indication: RHEUMATOID ARTHRITIS
     Route: 042
     Dates: start: 20111207
  2. PREDNISOLONE [Concomitant]
     Indication: RHEUMATOID ARTHRITIS
  3. CORTICOSTEROID NOS [Concomitant]
  4. ARAVA [Concomitant]
     Indication: RHEUMATOID ARTHRITIS
     Route: 048
  5. ACTEMRA [Suspect]
     Dates: start: 20120107

REACTIONS (4)
  - ERYSIPELAS [None]
  - EMBOLISM ARTERIAL [None]
  - PERIPHERAL ISCHAEMIA [None]
  - EXTREMITY NECROSIS [None]
